FAERS Safety Report 20259273 (Version 1)
Quarter: 2021Q4

REPORT INFORMATION
  Report Type: Spontaneous
  Country: FR (occurrence: FR)
  Receive Date: 20211230
  Receipt Date: 20211230
  Transmission Date: 20220303
  Serious: Yes (Other)
  Sender: FDA-Public Use
  Company Number: None

PATIENT
  Age: 28 Year
  Sex: Male

DRUGS (4)
  1. ACETAMINOPHEN [Suspect]
     Active Substance: ACETAMINOPHEN
     Indication: Poisoning deliberate
     Dosage: 3.5 G EN 1 PRISE
     Route: 048
     Dates: start: 20210812, end: 20210812
  2. ABILIFY [Suspect]
     Active Substance: ARIPIPRAZOLE
     Indication: Poisoning deliberate
     Dosage: 7 DOSAGE FORM,TOTAL
     Route: 048
     Dates: start: 20210812, end: 20210812
  3. CANNABIS SATIVA SUBSP. INDICA TOP [Suspect]
     Active Substance: CANNABIS SATIVA SUBSP. INDICA TOP
     Indication: Product used for unknown indication
     Dosage: UNK(INCONNUE)
     Route: 065
     Dates: start: 202108, end: 20210812
  4. IXPRIM [Suspect]
     Active Substance: ACETAMINOPHEN\TRAMADOL HYDROCHLORIDE
     Indication: Poisoning deliberate
     Dosage: 5 DOSAGE FORM,TOTAL
     Route: 048
     Dates: start: 20210812, end: 20210812

REACTIONS (3)
  - Poisoning deliberate [Recovered/Resolved]
  - Depressed level of consciousness [Recovered/Resolved]
  - Drug abuse [Not Recovered/Not Resolved]

NARRATIVE: CASE EVENT DATE: 20210812
